FAERS Safety Report 16462020 (Version 1)
Quarter: 2019Q2

REPORT INFORMATION
  Report Type: Spontaneous
  Country: CA (occurrence: CA)
  Receive Date: 20190621
  Receipt Date: 20190621
  Transmission Date: 20190711
  Serious: Yes (Congenital Anomaly, Other)
  Sender: FDA-Public Use
  Company Number: CA-TEVA-2019-CA-1066281

PATIENT
  Sex: Male

DRUGS (2)
  1. VALPROIC ACID. [Suspect]
     Active Substance: VALPROIC ACID
     Indication: PRODUCT USED FOR UNKNOWN INDICATION
     Dosage: 1000 MILLIGRAM DAILY;
     Route: 064
  2. FOLIC ACID. [Concomitant]
     Active Substance: FOLIC ACID
     Indication: PROPHYLAXIS OF NEURAL TUBE DEFECT
     Dosage: 5 MILLIGRAM DAILY;

REACTIONS (16)
  - Osteopenia [Recovered/Resolved]
  - Dysmorphism [Recovered/Resolved]
  - Visual impairment [Recovered/Resolved]
  - Fracture [Recovered/Resolved]
  - Poor feeding infant [Recovered/Resolved]
  - Deafness [Recovered/Resolved]
  - Foetal exposure during pregnancy [Recovered/Resolved]
  - Keratosis pilaris [Recovered/Resolved]
  - Language disorder [Recovered/Resolved]
  - Seizure [Recovered/Resolved]
  - Muscle disorder [Recovered/Resolved]
  - Anxiety [Recovered/Resolved]
  - Hypotonia [Recovered/Resolved]
  - Intellectual disability [Recovered/Resolved]
  - Developmental delay [Recovered/Resolved]
  - Foetal anticonvulsant syndrome [Recovered/Resolved]
